FAERS Safety Report 8010420-4 (Version None)
Quarter: 2011Q4

REPORT INFORMATION
  Report Type: 
  Country: None (occurrence: None)
  Receive Date: 20111222
  Receipt Date: 20111212
  Transmission Date: 20120403
  Serious: Yes (Hospitalization)
  Sender: FDA-Public Use
  Company Number: ADR-2011209088

PATIENT
  Age: 46 Year
  Sex: Female
  Weight: 58.0604 kg

DRUGS (2)
  1. BENADRYL [Concomitant]
  2. TERBINAFINE HYDROCHLORIDE [Suspect]
     Indication: ONYCHOMYCOSIS
     Dosage: BID + ORAL
     Route: 048

REACTIONS (4)
  - DRUG DOSE OMISSION [None]
  - SWELLING [None]
  - THERAPEUTIC RESPONSE DECREASED [None]
  - URTICARIA [None]
